FAERS Safety Report 5874241-0 (Version None)
Quarter: 2008Q3

REPORT INFORMATION
  Report Type: 
  Country: None (occurrence: None)
  Receive Date: 20080908
  Receipt Date: 20080826
  Transmission Date: 20090109
  Serious: Yes (Other)
  Sender: FDA-Public Use
  Company Number: FR-ELI_LILLY_AND_COMPANY-FR200805003913

PATIENT
  Sex: Female
  Weight: 70 kg

DRUGS (7)
  1. FORTEO [Suspect]
     Indication: OSTEOPOROSIS
     Dosage: 20 UG, DAILY (1/D)
     Route: 058
     Dates: start: 20080114, end: 20080612
  2. LEVOTHYROX [Concomitant]
     Indication: BASEDOW'S DISEASE
     Dosage: 100 UG, DAILY (1/D)
     Route: 048
     Dates: start: 20070701
  3. ZALDIAR [Concomitant]
     Indication: BONE PAIN
     Dosage: 2 D/F, DAILY (1/D)
     Route: 048
     Dates: start: 20070701
  4. KLIPAL [Concomitant]
     Indication: BONE PAIN
     Dosage: 1 D/F, DAILY (1/D)
     Route: 048
     Dates: start: 20070701
  5. STILNOX [Concomitant]
     Dosage: 0.5 D/F, DAILY (1/D)
     Route: 048
     Dates: start: 20070701
  6. OROCAL [Concomitant]
     Dosage: 500 MG, DAILY (1/D)
     Route: 048
     Dates: start: 20070701
  7. UVEDOSE [Concomitant]
     Dosage: 1 D/F, EVERY TWO MONTHS
     Route: 065
     Dates: start: 20070701

REACTIONS (1)
  - SQUAMOUS CELL CARCINOMA [None]
